FAERS Safety Report 6236468-8 (Version None)
Quarter: 2009Q2

REPORT INFORMATION
  Report Type: 
  Country: None (occurrence: None)
  Receive Date: 20090619
  Receipt Date: 20090609
  Transmission Date: 20091009
  Serious: Yes (Other)
  Sender: FDA-Public Use
  Company Number: B0575766A

PATIENT
  Age: 53 Year
  Sex: Female

DRUGS (12)
  1. ALLI [Suspect]
     Dosage: 60MG THREE TIMES PER DAY
     Route: 065
     Dates: start: 20090505, end: 20090508
  2. ORFIRIL LONG [Concomitant]
     Dosage: 1000MG TWICE PER DAY
  3. TOPAMAX [Concomitant]
     Dosage: 150MG TWICE PER DAY
  4. TRIMIPRAMINE MALEATE [Concomitant]
     Dosage: 100MG PER DAY
  5. TORSEMIDE [Concomitant]
     Dosage: 10MG PER DAY
  6. OMEP [Concomitant]
     Dosage: 20MG PER DAY
  7. DICLAC [Concomitant]
     Dosage: 75MG TWICE PER DAY
  8. ADDITIVES [Concomitant]
  9. MULTIMINERAL [Concomitant]
  10. MULTI-VITAMIN [Concomitant]
  11. VITAMIN B COMPLEX CAP [Concomitant]
  12. CALCIUM SANDOZ [Concomitant]

REACTIONS (4)
  - ABDOMINAL PAIN UPPER [None]
  - DIARRHOEA HAEMORRHAGIC [None]
  - INTENTIONAL DRUG MISUSE [None]
  - MUSCLE SPASMS [None]
